FAERS Safety Report 12118752 (Version 1)
Quarter: 2016Q1

REPORT INFORMATION
  Report Type: Report from Study
  Country: None (occurrence: US)
  Receive Date: 20160226
  Receipt Date: 20160226
  Transmission Date: 20160526
  Serious: Yes (Hospitalization)
  Sender: FDA-Public Use
  Company Number: US-BIOVITRUM-2016US0104

PATIENT
  Sex: Female

DRUGS (3)
  1. ORFADIN [Suspect]
     Active Substance: NITISINONE
     Indication: AMINO ACID METABOLISM DISORDER
     Dosage: 10 MG CAPSULES, 3 CAPSULES EVERY MORNING AND 2 CAPSULES EVERY EVENING.
     Route: 048
     Dates: start: 20140418
  2. ORFADIN [Suspect]
     Active Substance: NITISINONE
     Dosage: 60 MG DAILY
     Route: 048
  3. ORFADIN [Suspect]
     Active Substance: NITISINONE

REACTIONS (1)
  - Underdose [Unknown]
